FAERS Safety Report 5044763-3 (Version None)
Quarter: 2006Q3

REPORT INFORMATION
  Report Type: 
  Country: None (occurrence: None)
  Receive Date: 20060707
  Receipt Date: 20060628
  Transmission Date: 20061208
  Serious: Yes (Life-Threatening)
  Sender: FDA-Public Use
  Company Number: MX-JNJFOC-20060605749

PATIENT
  Age: 48 Year
  Sex: Male

DRUGS (1)
  1. TAVANIC [Suspect]
     Indication: DRUG USE FOR UNKNOWN INDICATION
     Route: 042
     Dates: start: 20051201

REACTIONS (5)
  - DERMATITIS EXFOLIATIVE [None]
  - DYSPNOEA [None]
  - PRURITUS [None]
  - RASH [None]
  - WHEEZING [None]
